FAERS Safety Report 24076805 (Version 1)
Quarter: 2024Q3

REPORT INFORMATION
  Report Type: Spontaneous
  Country: ES (occurrence: ES)
  Receive Date: 20240711
  Receipt Date: 20240711
  Transmission Date: 20241016
  Serious: Yes (Life-Threatening, Hospitalization, Other)
  Sender: SANDOZ
  Company Number: None

PATIENT
  Age: 72 Year
  Sex: Female
  Weight: 94 kg

DRUGS (20)
  1. ACETYLCYSTEINE [Suspect]
     Active Substance: ACETYLCYSTEINE
     Indication: Nasopharyngitis
     Dosage: UNK
     Route: 048
     Dates: start: 202401
  2. ACETYLCYSTEINE [Suspect]
     Active Substance: ACETYLCYSTEINE
     Indication: Influenza
  3. ACETYLCYSTEINE [Suspect]
     Active Substance: ACETYLCYSTEINE
     Indication: Rhinorrhoea
  4. AMOXICILLIN [Suspect]
     Active Substance: AMOXICILLIN
     Indication: Nasopharyngitis
     Dosage: UNK
     Route: 048
     Dates: start: 202401
  5. AMOXICILLIN [Suspect]
     Active Substance: AMOXICILLIN
     Indication: Influenza
  6. AMOXICILLIN [Suspect]
     Active Substance: AMOXICILLIN
     Indication: Rhinorrhoea
  7. AUGMENTIN [Suspect]
     Active Substance: AMOXICILLIN\CLAVULANATE POTASSIUM
     Indication: Nasopharyngitis
     Dosage: UNK
     Route: 048
     Dates: start: 202401
  8. AUGMENTIN [Suspect]
     Active Substance: AMOXICILLIN\CLAVULANATE POTASSIUM
     Indication: Influenza
  9. AUGMENTIN [Suspect]
     Active Substance: AMOXICILLIN\CLAVULANATE POTASSIUM
     Indication: Rhinorrhoea
  10. INSULIN GLARGINE [Suspect]
     Active Substance: INSULIN GLARGINE
     Dosage: 46 IU, QDDOSE FORM: SOLUTION FOR INJECTION
     Route: 058
     Dates: start: 20231108, end: 202311
  11. INSULIN GLARGINE [Suspect]
     Active Substance: INSULIN GLARGINE
     Dosage: 46 IU, QDDOSE FORM: SOLUTION FOR INJECTION
     Route: 058
     Dates: end: 202311
  12. INSULIN GLARGINE [Suspect]
     Active Substance: INSULIN GLARGINE
     Dosage: 42 IU, QDDOSE FORM: SOLUTION FOR INJECTION
     Route: 058
     Dates: start: 20231204
  13. INSULIN GLARGINE [Suspect]
     Active Substance: INSULIN GLARGINE
     Indication: Type 2 diabetes mellitus
     Dosage: 46 IU, QDDOSE FORM: SOLUTION FOR INJECTION
     Route: 058
     Dates: start: 20240204
  14. INSULIN GLARGINE [Suspect]
     Active Substance: INSULIN GLARGINE
     Dosage: 40 IU, QD
     Route: 058
     Dates: start: 20231201, end: 20231203
  15. INSULIN GLARGINE [Suspect]
     Active Substance: INSULIN GLARGINE
     Dosage: 44 IU, QDDOSE FORM: SOLUTION FOR INJECTION
     Route: 058
  16. ACETAMINOPHEN [Suspect]
     Active Substance: ACETAMINOPHEN
     Indication: Nasopharyngitis
     Dosage: UNK
     Route: 048
     Dates: start: 202401
  17. ACETAMINOPHEN [Suspect]
     Active Substance: ACETAMINOPHEN
     Indication: Influenza
  18. ACETAMINOPHEN [Suspect]
     Active Substance: ACETAMINOPHEN
     Indication: Rhinorrhoea
  19. RYBELSUS [Suspect]
     Active Substance: SEMAGLUTIDE
     Indication: Type 2 diabetes mellitus
     Dosage: 3 MG
     Route: 048
  20. DAPAGLIFLOZIN [Concomitant]
     Active Substance: DAPAGLIFLOZIN
     Indication: Product used for unknown indication
     Dosage: UNK
     Route: 065

REACTIONS (14)
  - Seizure [Recovered/Resolved]
  - Loss of consciousness [Recovered/Resolved]
  - Hypoglycaemia [Recovered/Resolved]
  - Blood glucose decreased [Recovering/Resolving]
  - Aphonia [Recovered/Resolved]
  - Decreased appetite [Not Recovered/Not Resolved]
  - Weight decreased [Not Recovered/Not Resolved]
  - Blood glucose increased [Recovered/Resolved]
  - Rhinorrhoea [Recovering/Resolving]
  - Asthenia [Recovered/Resolved]
  - Tooth disorder [Unknown]
  - Influenza [Recovering/Resolving]
  - Nasopharyngitis [Recovering/Resolving]
  - Hyperhidrosis [Recovered/Resolved]

NARRATIVE: CASE EVENT DATE: 20230101
